FAERS Safety Report 15602962 (Version 2)
Quarter: 2018Q4

REPORT INFORMATION
  Report Type: Spontaneous
  Country: BE (occurrence: BE)
  Receive Date: 20181109
  Receipt Date: 20181113
  Transmission Date: 20190205
  Serious: Yes (Death, Hospitalization, Other)
  Sender: FDA-Public Use
  Company Number: BE-PFIZER INC-2018451370

PATIENT
  Age: 62 Year
  Sex: Male

DRUGS (1)
  1. SOMAVERT [Suspect]
     Active Substance: PEGVISOMANT
     Indication: ACROMEGALY
     Dosage: 10 MG, 1X/DAY

REACTIONS (4)
  - Death [Fatal]
  - Device related infection [Unknown]
  - Fall [Unknown]
  - Compression fracture [Unknown]

NARRATIVE: CASE EVENT DATE: 201808
